FAERS Safety Report 21941550 (Version 1)
Quarter: 2023Q1

REPORT INFORMATION
  Report Type: Report from Study
  Country: US (occurrence: US)
  Receive Date: 20230202
  Receipt Date: 20230202
  Transmission Date: 20230417
  Serious: No
  Sender: FDA-Public Use
  Company Number: US-EXELIXIS-CABO-22054937

PATIENT
  Age: 58 Year
  Sex: Male

DRUGS (2)
  1. CABOMETYX [Suspect]
     Active Substance: CABOZANTINIB S-MALATE
     Indication: Renal cancer
     Dosage: 40 MG, QD
     Route: 048
     Dates: end: 202208
  2. CABOMETYX [Suspect]
     Active Substance: CABOZANTINIB S-MALATE
     Dosage: 40 MG, QD
     Route: 048
     Dates: start: 20220812

REACTIONS (12)
  - Skin erosion [Unknown]
  - Skin ulcer [Unknown]
  - Fatigue [Unknown]
  - Decreased appetite [Unknown]
  - Pain in extremity [Unknown]
  - Weight decreased [Unknown]
  - Stomatitis [Unknown]
  - Dyspepsia [Unknown]
  - Blood pressure increased [Unknown]
  - COVID-19 [Recovered/Resolved]
  - Nausea [Unknown]
  - Vomiting [Unknown]

NARRATIVE: CASE EVENT DATE: 20220804
